FAERS Safety Report 9708890 (Version 5)
Quarter: 2014Q1

REPORT INFORMATION
  Report Type: Report from Study
  Country: JP (occurrence: JP)
  Receive Date: 20131125
  Receipt Date: 20140224
  Transmission Date: 20141002
  Serious: Yes (Hospitalization, Other)
  Sender: FDA-Public Use
  Company Number: JP-TEVA-446285USA

PATIENT
  Age: 58 Year
  Sex: Male

DRUGS (29)
  1. BENDAMUSTINE [Suspect]
     Indication: B-CELL LYMPHOMA
     Route: 042
     Dates: start: 20131002
  2. RITUXIMAB [Suspect]
     Indication: B-CELL LYMPHOMA
     Dosage: IN VOLUME OF 625 ML
     Route: 042
     Dates: start: 20131001
  3. TRICHLORMETHIAZIDE [Concomitant]
     Indication: HYPERTENSION
     Dates: start: 20131004
  4. CLONIDINE [Concomitant]
     Indication: HYPERTENSION
  5. ACYCLOVIR [Concomitant]
     Indication: PROPHYLAXIS
     Dates: start: 20131001, end: 20131013
  6. GLYCYRRHIZIC ACID, AMMONIUM SALT [Concomitant]
     Indication: RASH MACULO-PAPULAR
     Dates: start: 20131013
  7. HYDROCORTISONE BUTYRATE [Concomitant]
     Indication: RASH MACULO-PAPULAR
     Dates: start: 20131007
  8. ATORVASTATIN CALCIUM [Concomitant]
     Indication: HYPERLIPIDAEMIA
  9. APREPITANT [Concomitant]
     Indication: PROPHYLAXIS
     Dates: start: 20131002
  10. APREPITANT [Concomitant]
     Dates: start: 20131003, end: 20131004
  11. INDAPAMIDE [Concomitant]
     Indication: HYPERTENSION
     Dates: start: 20131003
  12. ASPIRIN [Concomitant]
     Indication: CEREBRAL INFARCTION
  13. ALLOPURINOL [Concomitant]
     Indication: HYPERURICAEMIA
     Dates: start: 20131003
  14. ALLOPURINOL [Concomitant]
     Dates: start: 20131004, end: 20131013
  15. DIPHENHYDRAMINE HYDROCHLORIDE [Concomitant]
     Indication: PROPHYLAXIS
     Dates: start: 20131001
  16. ACETAMINOPHEN [Concomitant]
     Indication: PROPHYLAXIS
     Dates: start: 20131001
  17. BAKTAR [Concomitant]
     Indication: PROPHYLAXIS
     Dates: start: 20131001, end: 20131013
  18. RABEPRAZOLE SODIUM [Concomitant]
     Indication: PROPHYLAXIS
     Dates: start: 20131001
  19. DOMPERIDONE [Concomitant]
     Indication: NAUSEA
     Dates: start: 20131004, end: 20131005
  20. GRANISETRON HYDROCHLORIDE [Concomitant]
     Indication: PROPHYLAXIS
     Dates: start: 20131002, end: 20131003
  21. LOXOPROFEN SODIUM [Concomitant]
     Indication: FEBRILE NEUTROPENIA
     Dates: start: 20131010, end: 20131012
  22. PREDNISOLONE [Concomitant]
     Indication: RASH MACULO-PAPULAR
     Dates: start: 20131012, end: 20131015
  23. DIFLUPREDNATE [Concomitant]
     Indication: RASH MACULO-PAPULAR
     Dates: start: 20131012
  24. METOCLOPRAMIDE HYDROCHLORIDE [Concomitant]
     Indication: NAUSEA
     Dates: start: 20131005, end: 20131006
  25. CEFEPIME HYDROCHLORIDE [Concomitant]
     Indication: FEBRILE NEUTROPENIA
     Dates: start: 20131010, end: 20131015
  26. GLUCOSE [Concomitant]
     Indication: PRODUCT USED FOR UNKNOWN INDICATION
  27. LACTIC ACID [Concomitant]
     Indication: PRODUCT USED FOR UNKNOWN INDICATION
  28. POTASSIUM NOS [Concomitant]
     Indication: PRODUCT USED FOR UNKNOWN INDICATION
  29. SODIUM NOS [Concomitant]
     Indication: PRODUCT USED FOR UNKNOWN INDICATION

REACTIONS (1)
  - Hepatic function abnormal [Recovered/Resolved]
